FAERS Safety Report 23044376 (Version 1)
Quarter: 2023Q4

REPORT INFORMATION
  Report Type: Spontaneous
  Country: US (occurrence: US)
  Receive Date: 20231009
  Receipt Date: 20231009
  Transmission Date: 20240110
  Serious: Yes (Hospitalization)
  Sender: FDA-Public Use
  Company Number: US-MYLANLABS-2023M1105476

PATIENT
  Age: 76 Year
  Sex: Male
  Weight: 99.79 kg

DRUGS (2)
  1. ATORVASTATIN CALCIUM [Suspect]
     Active Substance: ATORVASTATIN CALCIUM
     Indication: Cerebral disorder
     Dosage: 10 MILLIGRAM, QD
     Route: 048
     Dates: start: 20200610, end: 20230714
  2. AMLODIPINE [Suspect]
     Active Substance: AMLODIPINE BESYLATE
     Indication: Cerebrovascular accident
     Dosage: 10 MILLIGRAM, QD (START DATE: 21-DEC-2022)
     Route: 048
     Dates: end: 20230706

REACTIONS (2)
  - Chest pain [Unknown]
  - Off label use [Unknown]

NARRATIVE: CASE EVENT DATE: 20220726
